FAERS Safety Report 7626936-6 (Version None)
Quarter: 2011Q3

REPORT INFORMATION
  Report Type: 
  Country: None (occurrence: None)
  Receive Date: 20110714
  Receipt Date: 20110629
  Transmission Date: 20111222
  Serious: Yes (Other)
  Sender: FDA-Public Use
  Company Number: AUR-APL-2011-03821

PATIENT
  Age: 60 Year
  Sex: Male
  Weight: 90.7 kg

DRUGS (6)
  1. METOPROLOL TARTRATE [Suspect]
     Indication: BLOOD PRESSURE ABNORMAL
     Dosage: (100 MG)
  2. CELLCEPT [Suspect]
     Indication: PRODUCT USED FOR UNKNOWN INDICATION
  3. TOPROL-XL [Suspect]
     Indication: PRODUCT USED FOR UNKNOWN INDICATION
     Dosage: (50 MG, 1 D), ORAL
     Route: 048
  4. ATACAND [Suspect]
     Indication: BLOOD PRESSURE ABNORMAL
     Dosage: 120 MG (60 MG, 2 IN 1 D), ORAL
     Route: 048
  5. RAPAMUNE [Suspect]
     Indication: RENAL TRANSPLANT
     Dosage: (1 MG, 1 D), ORAL
     Route: 048
     Dates: start: 20100901
  6. ATIVAN [Suspect]
     Indication: PRODUCT USED FOR UNKNOWN INDICATION
     Dosage: (0.5 MG, AS REQUIRED), ORAL
     Route: 048

REACTIONS (9)
  - HYPOTENSION [None]
  - WEIGHT DECREASED [None]
  - MALAISE [None]
  - ASTHENIA [None]
  - DECREASED APPETITE [None]
  - DIARRHOEA [None]
  - FATIGUE [None]
  - ABDOMINAL DISTENSION [None]
  - NAUSEA [None]
